FAERS Safety Report 18792156 (Version 1)
Quarter: 2021Q1

REPORT INFORMATION
  Report Type: Other
  Country: CA (occurrence: CA)
  Receive Date: 20210126
  Receipt Date: 20210126
  Transmission Date: 20210419
  Serious: Yes (Other)
  Sender: FDA-Public Use
  Company Number: CA-CELLTRION INC.-2021CA000596

PATIENT

DRUGS (11)
  1. PREDNISONE. [Concomitant]
     Active Substance: PREDNISONE
     Indication: PREMEDICATION
     Dosage: 50 MG
     Route: 048
  2. RITUXIMAB (UNKNOWN) [Suspect]
     Active Substance: RITUXIMAB
     Indication: POLYARTHRITIS
  3. ACETAMINOPHEN. [Concomitant]
     Active Substance: ACETAMINOPHEN
     Indication: PREMEDICATION
     Dosage: 1000 MG
     Route: 048
  4. ERGOCALCIFEROL. [Concomitant]
     Active Substance: ERGOCALCIFEROL
  5. ESCITALOPRAM [Concomitant]
     Active Substance: ESCITALOPRAM OXALATE
  6. ZOPICLONE [Concomitant]
     Active Substance: ZOPICLONE
  7. DIPHENHYDRAMINE. [Concomitant]
     Active Substance: DIPHENHYDRAMINE
     Indication: PREMEDICATION
     Dosage: 50 MG
     Route: 048
  8. RITUXIMAB (UNKNOWN) [Suspect]
     Active Substance: RITUXIMAB
     Indication: RHEUMATOID ARTHRITIS
     Dosage: 1000 MG
     Route: 042
  9. ADVAIR HFA [Concomitant]
     Active Substance: FLUTICASONE PROPIONATE\SALMETEROL XINAFOATE
  10. DOXYCYCLINE. [Concomitant]
     Active Substance: DOXYCYCLINE
     Indication: SJOGREN^S SYNDROME
  11. VITAMIN B12 [Concomitant]
     Active Substance: CYANOCOBALAMIN

REACTIONS (9)
  - Rheumatoid arthritis [Not Recovered/Not Resolved]
  - Allergy to metals [Not Recovered/Not Resolved]
  - Nephrolithiasis [Not Recovered/Not Resolved]
  - Blood calcium increased [Not Recovered/Not Resolved]
  - Osteoporosis [Not Recovered/Not Resolved]
  - Asthma [Not Recovered/Not Resolved]
  - Breast cancer [Not Recovered/Not Resolved]
  - Parathyroid disorder [Not Recovered/Not Resolved]
  - Off label use [Unknown]
